FAERS Safety Report 20175120 (Version 1)
Quarter: 2021Q4

REPORT INFORMATION
  Report Type: Spontaneous
  Country: US (occurrence: US)
  Receive Date: 20211213
  Receipt Date: 20211213
  Transmission Date: 20220304
  Serious: No
  Sender: FDA-Public Use
  Company Number: US-GW PHARMA-202112USGW06029

PATIENT

DRUGS (2)
  1. EPIDIOLEX [Suspect]
     Active Substance: CANNABIDIOL
     Indication: Tuberous sclerosis complex
     Dosage: UNK
     Route: 048
     Dates: start: 201812
  2. SIROLIMUS [Suspect]
     Active Substance: SIROLIMUS
     Indication: Tuberous sclerosis complex
     Dosage: UNK
     Route: 065
     Dates: start: 201312

REACTIONS (1)
  - Drug level increased [Unknown]

NARRATIVE: CASE EVENT DATE: 20181201
